FAERS Safety Report 19320043 (Version 1)
Quarter: 2021Q2

REPORT INFORMATION
  Report Type: Spontaneous
  Country: US (occurrence: US)
  Receive Date: 20210528
  Receipt Date: 20210528
  Transmission Date: 20210717
  Serious: Yes (Other)
  Sender: FDA-Public Use
  Company Number: US-PURDUE-USA-2020-0227129

PATIENT
  Sex: Male

DRUGS (6)
  1. TRAMADOL CR TABLETS (RHODES 21?745) [Suspect]
     Active Substance: TRAMADOL
     Indication: BACK PAIN
     Dosage: UNK
     Route: 048
     Dates: start: 1997
  2. ULTRAM [Suspect]
     Active Substance: TRAMADOL HYDROCHLORIDE
     Indication: BACK PAIN
     Dosage: UNK
     Route: 048
  3. OXYCODONE/ ACETAMINOPHEN TABLETS [Suspect]
     Active Substance: ACETAMINOPHEN\OXYCODONE HYDROCHLORIDE
     Indication: PRODUCT USED FOR UNKNOWN INDICATION
     Dosage: UNK
     Route: 048
  4. OXYCONTIN [Suspect]
     Active Substance: OXYCODONE HYDROCHLORIDE
     Indication: BACK PAIN
     Dosage: UNK
     Route: 048
     Dates: start: 1998, end: 2014
  5. OXYCODONE HCL TABLETS (RHODES 91?490) [Suspect]
     Active Substance: OXYCODONE HYDROCHLORIDE
     Indication: BACK PAIN
     Dosage: UNK
     Route: 048
  6. PERCOCET                           /00446701/ [Suspect]
     Active Substance: ACETAMINOPHEN\OXYCODONE HYDROCHLORIDE\OXYCODONE TEREPHTHALATE
     Indication: BACK PAIN
     Dosage: UNK
     Route: 048

REACTIONS (20)
  - Bradyphrenia [Unknown]
  - Anhedonia [Recovered/Resolved]
  - Libido decreased [Recovered/Resolved]
  - Anxiety [Unknown]
  - Panic disorder [Unknown]
  - Retching [Unknown]
  - Social avoidant behaviour [Unknown]
  - Asthenia [Unknown]
  - Cognitive disorder [Unknown]
  - Feeling jittery [Unknown]
  - Nervousness [Unknown]
  - Disturbance in attention [Unknown]
  - Somnolence [Unknown]
  - Nausea [Unknown]
  - Depression [Unknown]
  - Mental disorder [Unknown]
  - Dizziness [Recovered/Resolved]
  - Drug dependence [Unknown]
  - Insomnia [Unknown]
  - Migraine [Not Recovered/Not Resolved]
